FAERS Safety Report 10216700 (Version 3)
Quarter: 2014Q2

REPORT INFORMATION
  Report Type: Spontaneous
  Country: US (occurrence: US)
  Receive Date: 20140604
  Receipt Date: 20140624
  Transmission Date: 20141212
  Serious: Yes (Hospitalization)
  Sender: FDA-Public Use
  Company Number: US-ACTELION-A-NJ2014-99483

PATIENT
  Age: 79 Year
  Sex: Female

DRUGS (5)
  1. TRACLEER [Suspect]
     Indication: COR PULMONALE CHRONIC
     Dosage: UNK
     Route: 048
  2. VENTAVIS [Suspect]
     Indication: COR PULMONALE CHRONIC
     Dosage: UNK
     Route: 055
  3. ADCIRCA [Concomitant]
  4. COUMADIN [Concomitant]
  5. LETAIRIS [Concomitant]

REACTIONS (3)
  - Liver function test abnormal [Unknown]
  - Oedema peripheral [Unknown]
  - Fluid retention [Unknown]
